FAERS Safety Report 8119930-2 (Version None)
Quarter: 2012Q1

REPORT INFORMATION
  Report Type: 
  Country: None (occurrence: None)
  Receive Date: 20120206
  Receipt Date: 20120206
  Transmission Date: 20120608
  Serious: No
  Sender: FDA-Public Use
  Company Number: None

PATIENT
  Age: 37 Year
  Sex: Female
  Weight: 58.9676 kg

DRUGS (1)
  1. CLINDAMYCIN HCL [Suspect]
     Indication: TOOTH INFECTION
     Dosage: QTY 28 4X A DAY TIL GONE
     Dates: start: 20120109, end: 20120116

REACTIONS (15)
  - ARTHRALGIA [None]
  - BLOOD BLISTER [None]
  - PHARYNGEAL OEDEMA [None]
  - VOMITING [None]
  - DIARRHOEA [None]
  - RASH [None]
  - PAIN OF SKIN [None]
  - SWELLING FACE [None]
  - DIZZINESS [None]
  - SWOLLEN TONGUE [None]
  - ABDOMINAL PAIN [None]
  - CHROMATURIA [None]
  - POLLAKIURIA [None]
  - PRURITUS [None]
  - SYNCOPE [None]
